FAERS Safety Report 11209502 (Version 2)
Quarter: 2015Q3

REPORT INFORMATION
  Report Type: Spontaneous
  Country: US (occurrence: US)
  Receive Date: 20150622
  Receipt Date: 20150817
  Transmission Date: 20151125
  Serious: No
  Sender: FDA-Public Use
  Company Number: US-009507513-1506USA005404

PATIENT
  Sex: Female
  Weight: 97.52 kg

DRUGS (2)
  1. IBUPROFEN. [Concomitant]
     Active Substance: IBUPROFEN
  2. NEXPLANON [Suspect]
     Active Substance: ETONOGESTREL
     Indication: CONTRACEPTION
     Dosage: UNK
     Route: 059
     Dates: start: 20130213

REACTIONS (4)
  - Haemorrhage [Not Recovered/Not Resolved]
  - Vaginal odour [Not Recovered/Not Resolved]
  - Vaginal infection [Not Recovered/Not Resolved]
  - Device breakage [Not Recovered/Not Resolved]
